FAERS Safety Report 10234257 (Version 1)
Quarter: 2014Q2

REPORT INFORMATION
  Report Type: Spontaneous
  Country: US (occurrence: US)
  Receive Date: 20140612
  Receipt Date: 20140612
  Transmission Date: 20141212
  Serious: Yes (Other)
  Sender: FDA-Public Use
  Company Number: CHPA2014US008035

PATIENT
  Sex: Female

DRUGS (1)
  1. VOLTAREN GEL [Suspect]
     Route: 065

REACTIONS (3)
  - Crohn^s disease [Recovered/Resolved]
  - Therapeutic response changed [Unknown]
  - Drug administered at inappropriate site [Unknown]
